FAERS Safety Report 5844931-4 (Version None)
Quarter: 2008Q3

REPORT INFORMATION
  Report Type: 
  Country: None (occurrence: None)
  Receive Date: 20080814
  Receipt Date: 20080804
  Transmission Date: 20090109
  Serious: Yes (Death, Other)
  Sender: FDA-Public Use
  Company Number: US-AVENTIS-200813840US

PATIENT
  Sex: Female
  Weight: 93 kg

DRUGS (22)
  1. LOVENOX [Suspect]
     Route: 058
     Dates: start: 20080609, end: 20080611
  2. AMITRIPTYLINE HCL [Concomitant]
     Route: 048
  3. HYDROCHLOROTHIAZIDE [Concomitant]
     Route: 048
  4. LASIX [Concomitant]
     Route: 048
  5. LEVOTHYROXINE SODIUM [Concomitant]
     Route: 048
  6. SIMVASTIN [Concomitant]
     Route: 048
  7. VERAPAMIL [Concomitant]
     Route: 048
  8. AVANDIA [Concomitant]
     Route: 048
  9. CALCIUM [Concomitant]
     Route: 048
  10. MULTI-VITAMINS [Concomitant]
     Dosage: DOSE: UNK
     Route: 048
  11. ALBUTEROL [Concomitant]
     Dosage: DOSE: UNK
  12. XOPENEX [Concomitant]
     Dosage: DOSE: UNK
  13. METOPROLOL SUCCINATE [Concomitant]
     Route: 048
  14. CORDARONE [Concomitant]
     Dosage: DOSE: ^IV PROTOCOL^
     Route: 042
  15. AMBIEN [Concomitant]
     Route: 048
  16. MILK OF MAGNESIA [Concomitant]
     Route: 048
  17. ZOFRAN [Concomitant]
     Dosage: DOSE: 4MG Q6-8 HOURS
     Route: 042
  18. ZOFRAN [Concomitant]
     Dosage: DOSE: 4MG Q6-8 HOURS
     Route: 048
  19. TYLENOL [Concomitant]
     Dosage: DOSE: 500MG Q4-6HOURS
     Route: 048
  20. HYDROCODONE BITARTRATE [Concomitant]
     Dosage: DOSE: 7.5/325MG 1-2 TABLETS Q4-6HOURS
     Route: 048
  21. ANCEF                              /00288502/ [Concomitant]
     Dosage: DOSE: 1GM Q8HOURS X 3 DOSES
     Route: 042
  22. ASPIRIN [Concomitant]
     Route: 048
     Dates: end: 20080609

REACTIONS (3)
  - HYPOXIA [None]
  - VENTRICULAR FIBRILLATION [None]
  - VENTRICULAR TACHYCARDIA [None]
